FAERS Safety Report 6222138-9 (Version None)
Quarter: 2009Q2

REPORT INFORMATION
  Report Type: 
  Country: None (occurrence: None)
  Receive Date: 20090611
  Receipt Date: 20090602
  Transmission Date: 20091009
  Serious: Yes (Congenital Anomaly, Other)
  Sender: FDA-Public Use
  Company Number: US-ROCHE-480493

PATIENT
  Weight: 1.5 kg

DRUGS (11)
  1. MYCOPHENOLATE MOFETIL [Suspect]
  2. TACROLIMUS [Suspect]
     Route: 064
  3. SIROLIMUS [Suspect]
     Dosage: STARTED AT 24 WEEKS GESTATION
     Route: 064
  4. PREDNISONE [Concomitant]
  5. THYMOGLOBULIN [Concomitant]
     Dosage: TREATMENT FOR REJECTION
  6. LABETALOL HCL [Concomitant]
  7. OMEPRAZOLE [Concomitant]
  8. AZTREONAM [Concomitant]
  9. CLINDAMYCIN [Concomitant]
  10. GANCICLOVIR [Concomitant]
  11. EPOGEN [Concomitant]

REACTIONS (4)
  - CLEFT LIP AND PALATE [None]
  - MICROTIA [None]
  - PREMATURE BABY [None]
  - SMALL FOR DATES BABY [None]
